FAERS Safety Report 14171087 (Version 1)
Quarter: 2017Q4

REPORT INFORMATION
  Report Type: Spontaneous
  Country: SN (occurrence: SN)
  Receive Date: 20171108
  Receipt Date: 20171108
  Transmission Date: 20180321
  Serious: Yes (Hospitalization, Other)
  Sender: FDA-Public Use
  Company Number: SN-EDENBRIDGE PHARMACEUTICALS, LLC-SN-2017EDE000190

PATIENT
  Age: 35 Year
  Sex: Male
  Weight: 68 kg

DRUGS (2)
  1. IVERMECTIN. [Suspect]
     Active Substance: IVERMECTIN
     Indication: PRODUCT USED FOR UNKNOWN INDICATION
     Dosage: 150 MCG/KG BODY WEIGHT
     Dates: start: 20160509, end: 20160509
  2. IVERMECTIN. [Suspect]
     Active Substance: IVERMECTIN
     Dosage: 150 MCG/KG BODY WEIGHT
     Dates: start: 20160524, end: 20160524

REACTIONS (2)
  - Encephalopathy [Recovering/Resolving]
  - Extra dose administered [Unknown]

NARRATIVE: CASE EVENT DATE: 20160524
